FAERS Safety Report 4426814-X (Version None)
Quarter: 2004Q3

REPORT INFORMATION
  Report Type: 
  Country: None (occurrence: None)
  Receive Date: 20040816
  Receipt Date: 20010307
  Transmission Date: 20050211
  Serious: Yes (Life-Threatening, Hospitalization, Other)
  Sender: FDA-Public Use
  Company Number: JP-GLAXOSMITHKLINE-B0247070A

PATIENT
  Age: 58 Year
  Sex: Male
  Weight: 63 kg

DRUGS (3)
  1. AMOXICILLIN [Suspect]
     Dosage: 750MG PER DAY
     Route: 048
     Dates: start: 20010227, end: 20010227
  2. LANSOPRAZOLE [Concomitant]
     Dosage: 30MG PER DAY
     Route: 048
     Dates: start: 20010227, end: 20010227
  3. CLARITHROMYCIN [Concomitant]
     Dosage: 200MG PER DAY
     Route: 048
     Dates: start: 20010227, end: 20010227

REACTIONS (9)
  - ANAEMIA [None]
  - ANAPHYLACTIC SHOCK [None]
  - COLD SWEAT [None]
  - DIARRHOEA [None]
  - ERYTHEMA [None]
  - FEELING ABNORMAL [None]
  - PERIPHERAL COLDNESS [None]
  - PRURITUS [None]
  - VOMITING [None]
